FAERS Safety Report 8386897-1 (Version None)
Quarter: 2012Q2

REPORT INFORMATION
  Report Type: 
  Country: None (occurrence: None)
  Receive Date: 20120525
  Receipt Date: 20120522
  Transmission Date: 20120825
  Serious: Yes (Hospitalization)
  Sender: FDA-Public Use
  Company Number: US-CELGENEUS-163-21880-12031960

PATIENT
  Sex: Male
  Weight: 71.732 kg

DRUGS (12)
  1. LYRICA [Concomitant]
     Route: 065
  2. REVLIMID [Suspect]
     Indication: MYELOFIBROSIS
     Dosage: 5 MILLIGRAM
     Route: 048
     Dates: start: 20100101
  3. ASPIRIN [Concomitant]
     Route: 065
  4. ALLOPURINOL [Concomitant]
     Route: 065
  5. LASIX [Concomitant]
     Route: 065
  6. MULTI-VITAMINS [Concomitant]
     Route: 065
  7. ANDRODERM [Concomitant]
     Route: 065
  8. MEGACE [Concomitant]
     Route: 065
  9. OMEPRAZOLE [Concomitant]
     Route: 065
  10. TRAMADOL HCL [Concomitant]
     Route: 065
  11. ASPIRIN [Concomitant]
     Dosage: 81 MILLIGRAM
     Route: 065
  12. MULTIVITAMINS WITH IRON [Concomitant]
     Route: 065

REACTIONS (2)
  - INFECTION [None]
  - LIMB INJURY [None]
